FAERS Safety Report 19640218 (Version 1)
Quarter: 2021Q3

REPORT INFORMATION
  Report Type: Spontaneous
  Country: US (occurrence: US)
  Receive Date: 20210730
  Receipt Date: 20210730
  Transmission Date: 20211014
  Serious: Yes (Other)
  Sender: FDA-Public Use
  Company Number: US-NOVOPROD-831573

PATIENT
  Sex: Female

DRUGS (1)
  1. TRESIBA [Suspect]
     Active Substance: INSULIN DEGLUDEC
     Indication: PRODUCT USED FOR UNKNOWN INDICATION
     Dosage: 52 QD
     Route: 058
     Dates: start: 202007

REACTIONS (3)
  - Vision blurred [Unknown]
  - Fall [Unknown]
  - Ankle fracture [Unknown]
